FAERS Safety Report 14801058 (Version 1)
Quarter: 2018Q2

REPORT INFORMATION
  Report Type: Spontaneous
  Country: SI (occurrence: SI)
  Receive Date: 20180424
  Receipt Date: 20180424
  Transmission Date: 20180711
  Serious: Yes (Hospitalization, Other)
  Sender: FDA-Public Use
  Company Number: SI-AMGEN-SVNSP2018054242

PATIENT
  Age: 24 Year
  Sex: Male

DRUGS (1)
  1. BLINCYTO [Suspect]
     Active Substance: BLINATUMOMAB
     Indication: PRECURSOR B-LYMPHOBLASTIC LYMPHOMA RECURRENT
     Dosage: UNK
     Route: 065
     Dates: start: 20170123

REACTIONS (3)
  - Diarrhoea [Unknown]
  - Graft versus host disease in skin [Unknown]
  - Graft versus host disease [Unknown]

NARRATIVE: CASE EVENT DATE: 20170511
